FAERS Safety Report 4412919-6 (Version None)
Quarter: 2004Q3

REPORT INFORMATION
  Report Type: 
  Country: None (occurrence: None)
  Receive Date: 20040727
  Receipt Date: 20040721
  Transmission Date: 20050211
  Serious: Yes (Death)
  Sender: FDA-Public Use
  Company Number: 400225020/AKO-4141-AE

PATIENT
  Age: 79 Year
  Sex: Female

DRUGS (5)
  1. AK-FLUOR, 25%, AKORN [Suspect]
     Indication: ANGIOGRAM RETINA
     Dosage: 2ML.XL. IV
     Route: 042
     Dates: start: 20040615
  2. NEXIUM [Concomitant]
  3. PACERONE [Concomitant]
  4. PROPARACAINE HCL [Concomitant]
  5. AK-DILATE [Concomitant]

REACTIONS (4)
  - ANAPHYLACTOID REACTION [None]
  - COMA [None]
  - DISORIENTATION [None]
  - NAUSEA [None]
